FAERS Safety Report 19366674 (Version 1)
Quarter: 2021Q2

REPORT INFORMATION
  Report Type: Report from Study
  Country: FR (occurrence: FR)
  Receive Date: 20210603
  Receipt Date: 20210603
  Transmission Date: 20210717
  Serious: Yes (Death, Other)
  Sender: FDA-Public Use
  Company Number: FR-PFIZER INC-2021626827

PATIENT
  Sex: Female

DRUGS (2)
  1. CARBOPLATIN. [Suspect]
     Active Substance: CARBOPLATIN
     Indication: OVARIAN CANCER
     Dosage: 2 MG/ML, CYCLIC (AUC 2MG/ML.MIN, ON DAYS 1, 8, AND 15 EVERY 4 WEEKS)
  2. PACLITAXEL HOSPIRA [Suspect]
     Active Substance: PACLITAXEL
     Indication: OVARIAN CANCER
     Dosage: 60 MG/M2, CYCLIC, ON DAYS 1, 8, AND 15 EVERY 4 WEEKS

REACTIONS (2)
  - Infection [Fatal]
  - Septic shock [Fatal]
